FAERS Safety Report 17433349 (Version 3)
Quarter: 2020Q4

REPORT INFORMATION
  Report Type: Spontaneous
  Country: ES (occurrence: ES)
  Receive Date: 20200219
  Receipt Date: 20201124
  Transmission Date: 20210113
  Serious: Yes (Hospitalization, Other)
  Sender: FDA-Public Use
  Company Number: ES-LUPIN PHARMACEUTICALS INC.-2020-00696

PATIENT
  Age: 53 Year
  Sex: Female

DRUGS (9)
  1. COBICISTAT;DARUNAVIR [Interacting]
     Active Substance: COBICISTAT\DARUNAVIR ETHANOLATE
     Indication: HIV INFECTION
     Dosage: 800/150 MG, QD
     Route: 065
     Dates: start: 201804
  2. BOSENTAN. [Suspect]
     Active Substance: BOSENTAN
     Indication: PULMONARY ARTERIAL HYPERTENSION
     Dosage: 125 MILLIGRAM, BID
     Route: 065
     Dates: start: 201801
  3. BOSENTAN. [Interacting]
     Active Substance: BOSENTAN
     Dosage: 125 MILLIGRAM, BID
     Route: 065
     Dates: start: 201804
  4. RILPIVIRINE [Concomitant]
     Active Substance: RILPIVIRINE
     Indication: HIV INFECTION
     Dosage: 25 MILLIGRAM, QD
     Route: 065
  5. TADALAFIL. [Concomitant]
     Active Substance: TADALAFIL
     Indication: PULMONARY ARTERIAL HYPERTENSION
     Dosage: 20 MILLIGRAM, QD
     Route: 065
     Dates: start: 201801
  6. RALTEGRAVIR. [Concomitant]
     Active Substance: RALTEGRAVIR
     Indication: PULMONARY ARTERIAL HYPERTENSION
     Dosage: 400 MILLIGRAM, BID
     Route: 065
     Dates: start: 201801
  7. GLECAPREVIR;PIBRENTASVIR [Concomitant]
     Active Substance: GLECAPREVIR\PIBRENTASVIR
     Indication: HEPATITIS C
     Dosage: UNK
     Route: 065
  8. LOPINAVIR/RITONAVIR [Concomitant]
     Active Substance: LOPINAVIR\RITONAVIR
     Indication: PULMONARY ARTERIAL HYPERTENSION
     Dosage: 400/100 MG, BID
     Route: 065
     Dates: start: 201801
  9. TADALAFIL. [Concomitant]
     Active Substance: TADALAFIL
     Dosage: 20 MILLIGRAM, QD
     Route: 065
     Dates: start: 201804

REACTIONS (4)
  - Toxicity to various agents [Unknown]
  - Cardiac failure congestive [Recovering/Resolving]
  - Drug interaction [Unknown]
  - Virologic failure [Unknown]

NARRATIVE: CASE EVENT DATE: 201804
